FAERS Safety Report 6567109-8 (Version None)
Quarter: 2010Q1

REPORT INFORMATION
  Report Type: 
  Country: None (occurrence: None)
  Receive Date: 20100202
  Receipt Date: 20100122
  Transmission Date: 20100710
  Serious: Yes (Other)
  Sender: FDA-Public Use
  Company Number: FR-AMGEN-US370633

PATIENT
  Sex: Female

DRUGS (1)
  1. ENBREL [Suspect]
     Indication: ANKYLOSING SPONDYLITIS
     Route: 058
     Dates: start: 20090727

REACTIONS (6)
  - CHRONIC SINUSITIS [None]
  - GINGIVAL BLEEDING [None]
  - INCREASED TENDENCY TO BRUISE [None]
  - PURPURA [None]
  - THROMBOCYTOPENIA [None]
  - VESSEL PUNCTURE SITE HAEMORRHAGE [None]
